FAERS Safety Report 21209864 (Version 1)
Quarter: 2022Q3

REPORT INFORMATION
  Report Type: Spontaneous
  Country: FR (occurrence: FR)
  Receive Date: 20220813
  Receipt Date: 20220813
  Transmission Date: 20221027
  Serious: Yes (Hospitalization)
  Sender: FDA-Public Use
  Company Number: FR-NOVARTISPH-NVSC2022FR183496

PATIENT
  Age: 89 Year
  Sex: Female

DRUGS (2)
  1. ELTROMBOPAG OLAMINE [Suspect]
     Active Substance: ELTROMBOPAG OLAMINE
     Indication: Platelet disorder
     Dosage: 25 MG, QD
     Route: 065
     Dates: start: 202203, end: 202205
  2. ELTROMBOPAG OLAMINE [Suspect]
     Active Substance: ELTROMBOPAG OLAMINE
     Dosage: 50 MG, QD
     Route: 065
     Dates: start: 202205

REACTIONS (12)
  - Insomnia [Unknown]
  - Lung disorder [Unknown]
  - Cardiac disorder [Unknown]
  - Dyspnoea [Unknown]
  - Depression [Unknown]
  - Rhinitis [Unknown]
  - Peripheral swelling [Unknown]
  - Haematoma [Unknown]
  - Chills [Unknown]
  - Platelet count increased [Unknown]
  - Nasopharyngitis [Unknown]
  - Drug intolerance [Unknown]

NARRATIVE: CASE EVENT DATE: 20220501
